FAERS Safety Report 17936646 (Version 1)
Quarter: 2020Q2

REPORT INFORMATION
  Report Type: Spontaneous
  Country: IN (occurrence: IN)
  Receive Date: 20200624
  Receipt Date: 20200624
  Transmission Date: 20200714
  Serious: Yes (Hospitalization)
  Sender: FDA-Public Use
  Company Number: IN-ACCORD-186078

PATIENT
  Age: 75 Year
  Sex: Male

DRUGS (6)
  1. SYNCAPONE [Concomitant]
     Indication: PARKINSON^S DISEASE
     Dosage: 4 TIMES A DAY, 150 MG QID
     Route: 048
  2. CARBIDOPA/LEVODOPA [Suspect]
     Active Substance: CARBIDOPA\LEVODOPA
     Indication: PARKINSON^S DISEASE
     Dosage: HIKED TO 500 MG/DAY
  3. TELMISARTAN. [Concomitant]
     Active Substance: TELMISARTAN
     Indication: HYPERTENSION
     Route: 048
  4. VALPROIC ACID. [Concomitant]
     Active Substance: VALPROIC ACID
     Indication: SEIZURE
     Route: 048
  5. GLICLAZIDE/METFORMIN [Concomitant]
     Indication: DIABETES MELLITUS
  6. METOPROLOL. [Concomitant]
     Active Substance: METOPROLOL
     Indication: HYPERTENSION

REACTIONS (2)
  - Hyponatraemia [Recovered/Resolved]
  - Hiccups [Recovered/Resolved]
